FAERS Safety Report 23470692 (Version 1)
Quarter: 2024Q1

REPORT INFORMATION
  Report Type: Spontaneous
  Country: FR (occurrence: FR)
  Receive Date: 20240202
  Receipt Date: 20240202
  Transmission Date: 20240410
  Serious: Yes (Other)
  Sender: FDA-Public Use
  Company Number: FR-AFSSAPS-DJ2023001059

PATIENT
  Age: 71 Year
  Sex: Male

DRUGS (4)
  1. PREGABALIN [Suspect]
     Active Substance: PREGABALIN
     Indication: Sciatica
     Dosage: 150 MILLIGRAM, DAILY, 75MG 2 TIMES A DAY
     Route: 048
     Dates: start: 20230320, end: 20230329
  2. IBUPROFEN [Suspect]
     Active Substance: IBUPROFEN
     Indication: Sciatica
     Dosage: 1200 MILLIGRAM, DAILY
     Route: 048
     Dates: start: 20230310, end: 20230314
  3. POLYETHYLENE GLYCOLS [Suspect]
     Active Substance: POLYETHYLENE GLYCOLS
     Indication: Constipation
     Dosage: UNK
     Route: 048
     Dates: start: 20230308, end: 20230329
  4. PREDNISOLONE [Suspect]
     Active Substance: PREDNISOLONE
     Indication: Sciatica
     Dosage: 60 MILLIGRAM, DAILY
     Route: 048
     Dates: start: 20230321, end: 20230329

REACTIONS (1)
  - Rash maculo-papular [Recovered/Resolved]

NARRATIVE: CASE EVENT DATE: 20230329
